FAERS Safety Report 9003426 (Version 2)
Quarter: 2013Q4

REPORT INFORMATION
  Report Type: Spontaneous
  Country: GB (occurrence: GB)
  Receive Date: 20130108
  Receipt Date: 20131002
  Transmission Date: 20140711
  Serious: Yes (Life-Threatening)
  Sender: FDA-Public Use
  Company Number: GB-GLAXOSMITHKLINE-B0855949A

PATIENT
  Age: 67 Year
  Sex: Female
  Weight: 73 kg

DRUGS (6)
  1. REQUIP XL [Suspect]
     Indication: PARKINSON^S DISEASE
     Dosage: 20MG PER DAY
     Route: 048
     Dates: start: 20120208
  2. ROPINIROLE [Suspect]
     Indication: PARKINSON^S DISEASE
     Route: 048
     Dates: start: 20070629, end: 200905
  3. REQUIP XL [Suspect]
     Indication: PARKINSON^S DISEASE
     Dosage: 12MG PER DAY
     Route: 048
     Dates: start: 200905
  4. MADOPAR [Concomitant]
  5. RASAGILINE [Concomitant]
     Dosage: 1MG PER DAY
     Dates: start: 20120912
  6. OXYBUTYNIN [Concomitant]
     Dates: start: 201212

REACTIONS (2)
  - Disturbance in attention [Recovered/Resolved]
  - Somnambulism [Recovered/Resolved]
